FAERS Safety Report 25923381 (Version 1)
Quarter: 2025Q4

REPORT INFORMATION
  Report Type: Spontaneous
  Country: US (occurrence: US)
  Receive Date: 20251015
  Receipt Date: 20251015
  Transmission Date: 20260118
  Serious: No
  Sender: GALDERMA
  Company Number: US-GALDERMA-US2025018532

PATIENT

DRUGS (1)
  1. NEMLUVIO [Suspect]
     Active Substance: NEMOLIZUMAB-ILTO
     Indication: Product used for unknown indication
     Dosage: 60 MILLIGRAM
     Route: 058
     Dates: start: 202506, end: 202506

REACTIONS (4)
  - Alopecia [Not Recovered/Not Resolved]
  - Injection site injury [Not Recovered/Not Resolved]
  - Product dose omission issue [Recovered/Resolved]
  - Product administered at inappropriate site [Recovered/Resolved]

NARRATIVE: CASE EVENT DATE: 20250101
